FAERS Safety Report 23154034 (Version 1)
Quarter: 2023Q4

REPORT INFORMATION
  Report Type: Spontaneous
  Country: CA (occurrence: CA)
  Receive Date: 20231107
  Receipt Date: 20231107
  Transmission Date: 20240110
  Serious: Yes (Other)
  Sender: FDA-Public Use
  Company Number: CA-FreseniusKabi-FK202317540

PATIENT
  Age: 78 Year
  Sex: Female

DRUGS (1)
  1. IDACIO [Suspect]
     Active Substance: ADALIMUMAB-AACF
     Indication: Arthritis
     Route: 058

REACTIONS (2)
  - Device failure [Unknown]
  - Product dose omission issue [Unknown]
